FAERS Safety Report 21503112 (Version 1)
Quarter: 2022Q4

REPORT INFORMATION
  Report Type: Spontaneous
  Country: AT (occurrence: None)
  Receive Date: 20221025
  Receipt Date: 20221025
  Transmission Date: 20230113
  Serious: Yes (Hospitalization)
  Sender: FDA-Public Use
  Company Number: 2022A347902

PATIENT
  Age: 74 Year
  Sex: Female
  Weight: 53 kg

DRUGS (20)
  1. FULVESTRANT [Suspect]
     Active Substance: FULVESTRANT
     Indication: Breast cancer metastatic
     Dosage: MOST RECENT DOSE ADMINISTERED ON /OCT/2021 1 TIMES IN 4 WEEKS
     Route: 030
     Dates: start: 20200716
  2. FULVESTRANT [Suspect]
     Active Substance: FULVESTRANT
     Indication: Breast cancer metastatic
     Dosage: MOST RECENT DOSE ADMINISTERED ON /OCT/2021 1 TIMES IN 4 WEEKS
     Route: 030
     Dates: start: 20200716
  3. PALBOCICLIB [Suspect]
     Active Substance: PALBOCICLIB
     Indication: Breast cancer metastatic
     Dosage: MOST RECENT DOSE ADMINISTERED ON /DEC/2020100.0MG UNKNOWN
     Route: 048
     Dates: start: 202011, end: 202012
  4. RIBOCICLIB [Suspect]
     Active Substance: RIBOCICLIB
     Indication: Breast cancer metastatic
     Dosage: MOST RECENT DOSE ADMINISTERED ON 18/NOV/2020400.0MG UNKNOWN
     Route: 048
     Dates: start: 20200824
  5. CAPECITABINE [Suspect]
     Active Substance: CAPECITABINE
     Indication: Breast cancer metastatic
     Dosage: MOST RECENT DOSE ADMINISTERED ON /FEB/2022
     Route: 048
     Dates: start: 20211025
  6. LETROZOLE [Suspect]
     Active Substance: LETROZOLE
     Indication: Breast cancer metastatic
     Dosage: MOST RECENT DOSE ADMINISTERED ON 29/JUN/2020 1 TIME PER DAY
     Route: 048
     Dates: start: 20161021
  7. PERTUZUMAB [Suspect]
     Active Substance: PERTUZUMAB
     Indication: Breast cancer metastatic
     Dosage: MOST RECENT DOSE PRIOR TO THE EVENT: 27/FEB/2020 1 TIMES PER 3 WEEKS
     Route: 042
     Dates: start: 20160629, end: 20180621
  8. TRASTUZUMAB [Suspect]
     Active Substance: TRASTUZUMAB
     Indication: Breast cancer metastatic
     Dosage: MOST RECENT DOSE PRIOR TO THE EVENT: 27/FEB/2020 1 TIMES PER 3 WEEKS INTRAVENOUS DRIP (R2)
     Route: 042
     Dates: start: 20160629, end: 20180621
  9. DOCETAXEL [Suspect]
     Active Substance: DOCETAXEL
     Indication: Breast cancer metastatic
     Dosage: MOST RECENT DOSE ADMINISTERED ON 13/OCT/2016 1 TIMES PER 3 WEEKS
     Route: 042
     Dates: start: 20160629
  10. DENOSUMAB [Suspect]
     Active Substance: DENOSUMAB
     Indication: Breast cancer metastatic
     Dosage: MOST RECENT DOSE ADMINISTERED ON /JAN/2021 1 TIMES PER 4 WEEKS
     Route: 058
     Dates: start: 20161121
  11. METAMIZOLE [Concomitant]
     Active Substance: METAMIZOLE
     Dosage: ONGOING = CHECKED
     Dates: start: 20210915
  12. CLAVULANATE POTASSIUM/AMOXICILLIN [Concomitant]
     Dosage: ONGOING = CHECKED
     Dates: start: 20210915
  13. BETAISODONA [Concomitant]
     Active Substance: POVIDONE-IODINE
     Indication: Paronychia
     Dosage: ONGOING = CHECKED
     Dates: start: 20201111
  14. BETAMETHASONE DIPROPIONATE [Concomitant]
     Active Substance: BETAMETHASONE DIPROPIONATE
     Dosage: ONGOING = CHECKED
     Dates: start: 20180621
  15. PANTOPRAZOLE SODIUM [Concomitant]
     Active Substance: PANTOPRAZOLE SODIUM
     Indication: Gastritis
     Dosage: ONGOING = CHECKED
     Dates: start: 20211115
  16. HYDROMORPHONE HYDROCHLORIDE [Concomitant]
     Active Substance: HYDROMORPHONE HYDROCHLORIDE
     Indication: Pain
     Dosage: ONGOING = CHECKED
     Dates: start: 20210915
  17. METHYLPREDNISOLONE ACEPONATE [Concomitant]
     Active Substance: METHYLPREDNISOLONE ACEPONATE
     Indication: Palmar-plantar erythrodysaesthesia syndrome
     Dosage: ONGOING = CHECKED
     Dates: start: 20201111
  18. TRAMADOL [Concomitant]
     Active Substance: TRAMADOL
     Indication: Contusion
     Dosage: ONGOING = CHECKED
     Dates: start: 20220615
  19. NEBIVOLOL HYDROCHLORIDE [Concomitant]
     Active Substance: NEBIVOLOL HYDROCHLORIDE
     Dosage: ONGOING = CHECKED
     Dates: start: 20170115
  20. EUTHYROX [Concomitant]
     Active Substance: LEVOTHYROXINE SODIUM
     Dosage: ONGOING = CHECKED
     Dates: start: 20210223

REACTIONS (1)
  - Contusion [Recovered/Resolved]

NARRATIVE: CASE EVENT DATE: 20220611
